FAERS Safety Report 9564736 (Version 1)
Quarter: 2013Q3

REPORT INFORMATION
  Report Type: Spontaneous
  Country: US (occurrence: US)
  Receive Date: 20130930
  Receipt Date: 20130930
  Transmission Date: 20140515
  Serious: No
  Sender: FDA-Public Use
  Company Number: US-PFIZER INC-2013278830

PATIENT
  Age: 46 Year
  Sex: Male
  Weight: 90.7 kg

DRUGS (4)
  1. XANAX [Suspect]
     Indication: PANIC DISORDER
     Dosage: 0.25 MG, 2X/DAY
     Route: 048
     Dates: start: 2008
  2. XANAX [Suspect]
     Indication: ANXIETY DISORDER
     Dosage: 0.5 MG, UNK
     Route: 048
  3. ACIPHEX [Concomitant]
     Indication: GASTROOESOPHAGEAL REFLUX DISEASE
     Dosage: UNK
  4. SIMVASTATIN [Concomitant]
     Indication: BLOOD CHOLESTEROL INCREASED
     Dosage: UNK

REACTIONS (1)
  - Drug ineffective [Unknown]
